FAERS Safety Report 15924449 (Version 2)
Quarter: 2019Q1

REPORT INFORMATION
  Report Type: Spontaneous
  Country: US (occurrence: US)
  Receive Date: 20190206
  Receipt Date: 20190214
  Transmission Date: 20190417
  Serious: Yes (Other)
  Sender: FDA-Public Use
  Company Number: US-ASTRAZENECA-2018SF14144

PATIENT
  Age: 23785 Day
  Sex: Male

DRUGS (22)
  1. NEXIUM [Suspect]
     Active Substance: ESOMEPRAZOLE MAGNESIUM
     Route: 048
     Dates: start: 20131004, end: 20140907
  2. CARVEDILOL. [Concomitant]
     Active Substance: CARVEDILOL
     Route: 048
     Dates: end: 20130702
  3. HUMULIN R, NOVOLIN R [Concomitant]
     Route: 058
     Dates: end: 20130525
  4. IMDUR [Concomitant]
     Active Substance: ISOSORBIDE MONONITRATE
     Route: 048
     Dates: end: 20130715
  5. FELDENE [Concomitant]
     Active Substance: PIROXICAM
     Route: 048
     Dates: end: 20130424
  6. TRAMADOL. [Concomitant]
     Active Substance: TRAMADOL
     Route: 048
     Dates: end: 20140514
  7. NEXIUM [Suspect]
     Active Substance: ESOMEPRAZOLE MAGNESIUM
     Route: 048
     Dates: start: 2012, end: 2016
  8. NEXIUM [Suspect]
     Active Substance: ESOMEPRAZOLE MAGNESIUM
     Route: 048
     Dates: start: 20140907, end: 20141210
  9. HUMULIN N, NOVOLIN N [Concomitant]
     Route: 058
     Dates: end: 20130525
  10. PRINZIDE, ZESTORECTIC [Concomitant]
     Route: 048
     Dates: end: 20130530
  11. COZAAR [Concomitant]
     Active Substance: LOSARTAN POTASSIUM
     Route: 048
     Dates: end: 20130723
  12. PRAVACHOL [Concomitant]
     Active Substance: PRAVASTATIN SODIUM
     Route: 048
     Dates: end: 20130517
  13. ASPIRIN. [Concomitant]
     Active Substance: ASPIRIN
     Route: 048
     Dates: end: 20150516
  14. FLEXERIL [Concomitant]
     Active Substance: CYCLOBENZAPRINE HYDROCHLORIDE
     Route: 048
     Dates: end: 20131226
  15. LYRICA [Concomitant]
     Active Substance: PREGABALIN
     Route: 048
     Dates: start: 20131006, end: 20140408
  16. NEURONTIN [Concomitant]
     Active Substance: GABAPENTIN
     Route: 048
     Dates: end: 20140603
  17. NEXIUM [Suspect]
     Active Substance: ESOMEPRAZOLE MAGNESIUM
     Route: 048
     Dates: end: 20131004
  18. COREG [Concomitant]
     Active Substance: CARVEDILOL
     Route: 048
     Dates: end: 20130702
  19. BENADRYL [Concomitant]
     Active Substance: DIPHENHYDRAMINE HYDROCHLORIDE
     Route: 048
     Dates: end: 20140603
  20. ZITHROMAX [Concomitant]
     Active Substance: AZITHROMYCIN DIHYDRATE
     Route: 048
     Dates: end: 20130924
  21. NIZORAL [Concomitant]
     Active Substance: KETOCONAZOLE
     Route: 061
     Dates: end: 20140217
  22. NORVASC [Concomitant]
     Active Substance: AMLODIPINE BESYLATE
     Route: 048
     Dates: end: 20130717

REACTIONS (2)
  - Acute kidney injury [Unknown]
  - Chronic kidney disease [Unknown]

NARRATIVE: CASE EVENT DATE: 20130730
